FAERS Safety Report 17809735 (Version 5)
Quarter: 2020Q4

REPORT INFORMATION
  Report Type: Report from Study
  Country: US (occurrence: US)
  Receive Date: 20200520
  Receipt Date: 20201210
  Transmission Date: 20210113
  Serious: Yes (Other)
  Sender: FDA-Public Use
  Company Number: US-BRISTOL-MYERS SQUIBB COMPANY-BMS-2020-038832

PATIENT
  Age: 68 Year
  Sex: Female

DRUGS (2)
  1. ABATACEPT [Suspect]
     Active Substance: ABATACEPT
     Indication: SYSTEMIC SCLERODERMA
     Dosage: UNK
     Route: 065
  2. MYCOPHENOLATE MOFETIL. [Concomitant]
     Active Substance: MYCOPHENOLATE MOFETIL
     Indication: PRODUCT USED FOR UNKNOWN INDICATION
     Dosage: UNK
     Route: 065

REACTIONS (5)
  - Urinary tract infection [Recovered/Resolved]
  - Bronchitis [Recovered/Resolved]
  - Clostridium difficile infection [Recovered/Resolved]
  - Intentional product use issue [Unknown]
  - Skin cancer [Recovered/Resolved]

NARRATIVE: CASE EVENT DATE: 20190601
